FAERS Safety Report 21513196 (Version 1)
Quarter: 2022Q4

REPORT INFORMATION
  Report Type: Spontaneous
  Country: US (occurrence: None)
  Receive Date: 20221026
  Receipt Date: 20221026
  Transmission Date: 20230112
  Serious: Yes (Other)
  Sender: FDA-Public Use
  Company Number: None

PATIENT
  Age: 70 Year
  Sex: Female
  Weight: 72 kg

DRUGS (11)
  1. REVLIMID [Suspect]
     Active Substance: LENALIDOMIDE
     Indication: Plasma cell myeloma
     Dosage: FREQUENCY : DAILY;?
     Route: 048
     Dates: start: 20210405
  2. ACYCLOVIR [Concomitant]
     Active Substance: ACYCLOVIR
  3. DEXAMETHASONE [Concomitant]
     Active Substance: DEXAMETHASONE
  4. DULOXETINE [Concomitant]
     Active Substance: DULOXETINE
  5. FUROSEMIDE [Concomitant]
     Active Substance: FUROSEMIDE
  6. HYDROXYZINE [Concomitant]
     Active Substance: HYDROXYZINE HYDROCHLORIDE
  7. LYRICA [Concomitant]
     Active Substance: PREGABALIN
  8. MAGNESIUM [Concomitant]
     Active Substance: MAGNESIUM
  9. MEDROL [Concomitant]
     Active Substance: METHYLPREDNISOLONE
  10. METAMUCIL [Concomitant]
     Active Substance: PLANTAGO SEED
  11. PEPCID [Concomitant]
     Active Substance: FAMOTIDINE

REACTIONS (1)
  - Thrombocytopenia [None]

NARRATIVE: CASE EVENT DATE: 20221026
